FAERS Safety Report 4340676-0 (Version None)
Quarter: 2004Q2

REPORT INFORMATION
  Report Type: 
  Country: None (occurrence: None)
  Receive Date: 20040414
  Receipt Date: 20040401
  Transmission Date: 20050107
  Serious: Yes (Death)
  Sender: FDA-Public Use
  Company Number: HQWYE794719DEC03

PATIENT
  Age: 34 Year
  Sex: Female
  Weight: 59.93 kg

DRUGS (5)
  1. EFFEXOR XR [Suspect]
     Dosage: OVERDOSE, ORAL
     Route: 048
     Dates: start: 20010901, end: 20010901
  2. DURAGESIC [Suspect]
     Dosage: OVERDOSE
     Dates: start: 20010901, end: 20010901
  3. BUPROPION (AMFEBUTAMONE) [Concomitant]
  4. MIRTAZAPINE [Concomitant]
  5. METOCLOPRAMIDE [Concomitant]

REACTIONS (4)
  - COMA [None]
  - DRUG TOXICITY [None]
  - OVERDOSE [None]
  - RIB FRACTURE [None]
